FAERS Safety Report 6679325-5 (Version None)
Quarter: 2010Q2

REPORT INFORMATION
  Report Type: 
  Country: None (occurrence: None)
  Receive Date: 20100413
  Receipt Date: 20100401
  Transmission Date: 20101027
  Serious: Yes (Hospitalization)
  Sender: FDA-Public Use
  Company Number: GB-ELI_LILLY_AND_COMPANY-GB201004000544

PATIENT
  Sex: Male

DRUGS (3)
  1. GEMCITABINE HCL [Suspect]
     Indication: NON-SMALL CELL LUNG CANCER
     Dosage: 1000 MG/M2, DAYS 1+8 EVERY THREE WEEKS
     Route: 042
     Dates: start: 20100315
  2. CETUXIMAB [Suspect]
     Indication: NON-SMALL CELL LUNG CANCER
     Dosage: 400 MG/M2, ONCE
     Route: 042
     Dates: start: 20100315
  3. CARBOPLATIN [Suspect]
     Indication: NON-SMALL CELL LUNG CANCER
     Dosage: 5 AUC, DAY 1 EVERY 21 DAYS
     Route: 042
     Dates: start: 20100315

REACTIONS (1)
  - NEUTROPENIC SEPSIS [None]
